FAERS Safety Report 5063158-X (Version None)
Quarter: 2006Q3

REPORT INFORMATION
  Report Type: 
  Country: None (occurrence: None)
  Receive Date: 20060724
  Receipt Date: 20060705
  Transmission Date: 20061208
  Serious: Yes (Other)
  Sender: FDA-Public Use
  Company Number: US200606002253

PATIENT
  Sex: Female

DRUGS (1)
  1. CYMBALTA [Suspect]

REACTIONS (5)
  - HEPATIC ENZYME INCREASED [None]
  - LIVER DISORDER [None]
  - LYMPHOMA [None]
  - NAUSEA [None]
  - SWELLING [None]
